FAERS Safety Report 7790432-6 (Version None)
Quarter: 2011Q3

REPORT INFORMATION
  Report Type: 
  Country: None (occurrence: None)
  Receive Date: 20110930
  Receipt Date: 20110928
  Transmission Date: 20111222
  Serious: Yes (Other)
  Sender: FDA-Public Use
  Company Number: JP-PFIZER INC-2011204986

PATIENT
  Age: 58 Year
  Sex: Male

DRUGS (1)
  1. NORVASC [Suspect]
     Dosage: UNK
     Dates: end: 20110902

REACTIONS (2)
  - ATRIOVENTRICULAR BLOCK [None]
  - SINOATRIAL BLOCK [None]
